FAERS Safety Report 15085233 (Version 1)
Quarter: 2018Q3

REPORT INFORMATION
  Report Type: Spontaneous
  Country: FR (occurrence: FR)
  Receive Date: 20180628
  Receipt Date: 20180628
  Transmission Date: 20181010
  Serious: Yes (Hospitalization)
  Sender: FDA-Public Use
  Company Number: FR-TEVA-2018-FR-913289

PATIENT
  Age: 97 Year
  Sex: Female

DRUGS (10)
  1. LASILIX [Concomitant]
     Active Substance: FUROSEMIDE
     Route: 065
  2. LOXEN (NICARDIPINE HYDROCHLORIDE) [Suspect]
     Active Substance: NICARDIPINE HYDROCHLORIDE
     Indication: CARDIAC FAILURE
     Route: 048
  3. CETIRIZINE (DICHLORHYDRATE DE) [Concomitant]
     Active Substance: CETIRIZINE HYDROCHLORIDE
     Route: 065
  4. LEVOTHYROX [Concomitant]
     Active Substance: LEVOTHYROXINE
     Route: 065
  5. URAPIDIL [Concomitant]
     Active Substance: URAPIDIL
     Route: 065
  6. INSULINE [Concomitant]
     Active Substance: INSULIN NOS
     Route: 065
  7. ALDACTONE (POTASSIUM CANRENOATE) [Suspect]
     Active Substance: CANRENOATE POTASSIUM
     Indication: CARDIAC FAILURE
     Dosage: 1 DOSAGE FORMS DAILY; 1 CP LE MIDI
     Route: 048
     Dates: end: 20180503
  8. TRINITRINE (SOLUTION DE) [Concomitant]
     Route: 065
  9. MOVICOL [Suspect]
     Active Substance: POLYETHYLENE GLYCOL 3350\POTASSIUM CHLORIDE\SODIUM BICARBONATE\SODIUM CHLORIDE
     Indication: CONSTIPATION
     Route: 048
  10. RAMIPRIL. [Suspect]
     Active Substance: RAMIPRIL
     Indication: CARDIAC FAILURE
     Dosage: 1 MILLIGRAM DAILY; 1 LE MATIN
     Route: 048

REACTIONS (4)
  - Atrioventricular block [Recovered/Resolved]
  - Hyperkalaemia [Recovered/Resolved]
  - Bradycardia [Recovered/Resolved]
  - Hyponatraemia [Recovering/Resolving]

NARRATIVE: CASE EVENT DATE: 20180513
